FAERS Safety Report 7817937-3 (Version None)
Quarter: 2011Q4

REPORT INFORMATION
  Report Type: 
  Country: None (occurrence: None)
  Receive Date: 20111017
  Receipt Date: 20111011
  Transmission Date: 20120403
  Serious: Yes (Hospitalization, Other)
  Sender: FDA-Public Use
  Company Number: CA-GLAXOSMITHKLINE-A0948565A

PATIENT
  Sex: Female
  Weight: 51.7 kg

DRUGS (4)
  1. VALACYCLOVIR [Suspect]
     Indication: CYTOMEGALOVIRUS INFECTION
     Dosage: 500MG FOUR TIMES PER DAY
     Route: 048
  2. OFATUMUMAB [Suspect]
     Indication: CHRONIC LYMPHOCYTIC LEUKAEMIA
     Dosage: 2G CYCLIC
     Route: 042
     Dates: start: 20110525
  3. GANCICLOVIR [Suspect]
     Indication: CYTOMEGALOVIRUS INFECTION
     Dosage: 285MG PER DAY
     Route: 042
     Dates: start: 20110923, end: 20110930
  4. SEPTRA DS [Concomitant]

REACTIONS (6)
  - ABDOMINAL PAIN [None]
  - PANCYTOPENIA [None]
  - THROMBOCYTOPENIA [None]
  - DIARRHOEA [None]
  - NEUTROPENIA [None]
  - IMMUNODEFICIENCY COMMON VARIABLE [None]
